FAERS Safety Report 8830665 (Version 3)
Quarter: 2013Q3

REPORT INFORMATION
  Report Type: Spontaneous
  Country: US (occurrence: US)
  Receive Date: 20121009
  Receipt Date: 20130701
  Transmission Date: 20140515
  Serious: Yes (Other)
  Sender: FDA-Public Use
  Company Number: US-UCBSA-052285

PATIENT
  Sex: Female

DRUGS (6)
  1. KEPPRA XR [Suspect]
     Indication: CONVULSION
     Dosage: SHE HAD BEEN RANGING FROM 2500MG TO 3000MG FOR THE PAST SEVERAL YEARS BASED ON HER SEIZURE STATUS
  2. KEPPRA [Suspect]
     Indication: CONVULSION
     Dosage: STRENGTH: 1000MG
  3. FOSAMAX [Concomitant]
  4. LEXAPRO [Concomitant]
     Dosage: 10 MG
  5. SYNTHROID [Concomitant]
  6. LIPITOR [Concomitant]

REACTIONS (2)
  - Breast cancer [Unknown]
  - Convulsion [Unknown]
